FAERS Safety Report 15715457 (Version 1)
Quarter: 2018Q4

REPORT INFORMATION
  Report Type: Spontaneous
  Country: FR (occurrence: FR)
  Receive Date: 20181212
  Receipt Date: 20181212
  Transmission Date: 20190205
  Serious: Yes (Hospitalization)
  Sender: FDA-Public Use
  Company Number: FR-BAUSCH-BL-2018-034508

PATIENT
  Age: 80 Year
  Sex: Female
  Weight: 83 kg

DRUGS (14)
  1. METFORMINE [Suspect]
     Active Substance: METFORMIN HYDROCHLORIDE
     Indication: DIABETES MELLITUS
     Dosage: IN THE EVENING
     Route: 048
     Dates: end: 20181119
  2. TAREG [Suspect]
     Active Substance: VALSARTAN
     Indication: HYPERTENSION
     Dosage: IN THE MORNING
     Route: 048
     Dates: end: 20181119
  3. DOLIPRANE [Suspect]
     Active Substance: ACETAMINOPHEN
     Indication: PAIN
     Dosage: 500 MG 2 CP MORNING AND EVENING. (DAILY DOSE: 2000 MG)
     Route: 048
     Dates: end: 20181119
  4. SPASFON LYOC [Suspect]
     Active Substance: PHLOROGLUCINOL
     Indication: PAIN
     Dosage: 10 MG/40 MG, 1 TO 3 / DAY IF NEEDED (LYOPHILISATE)
     Route: 048
     Dates: start: 20181112, end: 20181119
  5. KARDEGIC [Concomitant]
     Active Substance: ASPIRIN DL-LYSINE
     Indication: PRODUCT USED FOR UNKNOWN INDICATION
  6. ESOMEPRAZOLE. [Concomitant]
     Active Substance: ESOMEPRAZOLE MAGNESIUM
     Indication: PRODUCT USED FOR UNKNOWN INDICATION
  7. ADANCOR [Suspect]
     Active Substance: NICORANDIL
     Indication: ANGINA PECTORIS
     Route: 048
     Dates: end: 20181119
  8. DISCOTRINE [Concomitant]
     Active Substance: NITROGLYCERIN
     Indication: PRODUCT USED FOR UNKNOWN INDICATION
  9. LIPTRUZET [Suspect]
     Active Substance: ATORVASTATIN CALCIUM\EZETIMIBE
     Indication: HYPERTENSION
     Dosage: 10 MG/40 MG, 1 IN EVENING
     Route: 048
     Dates: end: 20181119
  10. BISOPROLOL [Concomitant]
     Active Substance: BISOPROLOL
     Indication: PRODUCT USED FOR UNKNOWN INDICATION
  11. STRESAM [Concomitant]
     Active Substance: ETIFOXINE
     Indication: PRODUCT USED FOR UNKNOWN INDICATION
     Dosage: 3 (UNKNOWN UNIT) / DAY
  12. XALATAN [Concomitant]
     Active Substance: LATANOPROST
     Indication: PRODUCT USED FOR UNKNOWN INDICATION
  13. DOMPERIDONE [Suspect]
     Active Substance: DOMPERIDONE
     Indication: PAIN
     Dosage: 1 CP 2 TO 3X / DAY IF NEEDED (AS REQUIRED)
     Route: 048
     Dates: start: 20181112, end: 20181119
  14. LAMALINE (CAFFEINE\PARACETAMOL\ATROPA BELLADONNA EXTRACT\PAPAVER SOMNIFERUM TINCTURE) [Suspect]
     Active Substance: ACETAMINOPHEN\BELLADONNA LEAF\CAFFEINE\OPIUM
     Indication: PAIN
     Dosage: IF NECESSARY
     Route: 054
     Dates: end: 20181119

REACTIONS (2)
  - Cholestasis [Recovering/Resolving]
  - Cell death [Recovering/Resolving]

NARRATIVE: CASE EVENT DATE: 20181119
